FAERS Safety Report 14190313 (Version 2)
Quarter: 2018Q1

REPORT INFORMATION
  Report Type: Spontaneous
  Country: JP (occurrence: JP)
  Receive Date: 20171115
  Receipt Date: 20180207
  Transmission Date: 20180508
  Serious: Yes (Death, Hospitalization)
  Sender: FDA-Public Use
  Company Number: JP-ELI_LILLY_AND_COMPANY-JP201711003635

PATIENT
  Age: 70 Year
  Sex: Male

DRUGS (4)
  1. CYRAMZA [Suspect]
     Active Substance: RAMUCIRUMAB
     Indication: GASTRIC CANCER
     Dosage: UNK UNK, UNKNOWN
     Route: 041
     Dates: start: 20170630
  2. FUROSEMIDE. [Concomitant]
     Active Substance: FUROSEMIDE
     Dosage: UNK, UNKNOWN
     Route: 065
  3. ENEVO [Concomitant]
     Dosage: UNK, UNKNOWN
     Route: 065
  4. PACLITAXEL. [Suspect]
     Active Substance: PACLITAXEL
     Indication: GASTRIC CANCER
     Dosage: UNK UNK, UNKNOWN
     Route: 041
     Dates: start: 20170630

REACTIONS (2)
  - Malignant neoplasm progression [Fatal]
  - Hepatic function abnormal [Unknown]

NARRATIVE: CASE EVENT DATE: 20171026
